FAERS Safety Report 5680600-1 (Version None)
Quarter: 2008Q1

REPORT INFORMATION
  Report Type: 
  Country: None (occurrence: None)
  Receive Date: 20080326
  Receipt Date: 20080318
  Transmission Date: 20080703
  Serious: Yes (Death, Life-Threatening, Hospitalization, Other)
  Sender: FDA-Public Use
  Company Number: GB-AVENTIS-200812485GDDC

PATIENT
  Age: 84 Year
  Sex: Female

DRUGS (5)
  1. METRONIDAZOLE HCL [Suspect]
     Dates: start: 20080208, end: 20080211
  2. CO-CODAMOL [Concomitant]
     Dosage: DOSE: UNK
  3. DEXAMETHASONE TAB [Concomitant]
     Dosage: DOSE: UNK
  4. FUROSEMIDE [Concomitant]
     Dosage: DOSE: UNK
  5. NOVOMIX                            /01475801/ [Concomitant]
     Dosage: DOSE: UNK

REACTIONS (4)
  - BLISTER [None]
  - BRAIN NEOPLASM [None]
  - DEHYDRATION [None]
  - PAIN [None]
